FAERS Safety Report 17587274 (Version 1)
Quarter: 2020Q1

REPORT INFORMATION
  Report Type: Spontaneous
  Country: OM (occurrence: OM)
  Receive Date: 20200326
  Receipt Date: 20200326
  Transmission Date: 20200409
  Serious: Yes (Other)
  Sender: FDA-Public Use
  Company Number: NVSC2020OM084761

PATIENT
  Age: 10 Year
  Sex: Female

DRUGS (1)
  1. DEFERASIROX. [Suspect]
     Active Substance: DEFERASIROX
     Indication: PRODUCT USED FOR UNKNOWN INDICATION
     Dosage: UNK
     Route: 065

REACTIONS (12)
  - Sickle cell anaemia with crisis [Unknown]
  - Lower respiratory tract infection [Unknown]
  - Alanine aminotransferase increased [Unknown]
  - Aspartate aminotransferase increased [Unknown]
  - Hyperchlorhydria [Unknown]
  - Pallor [Unknown]
  - Oropharyngeal pain [Unknown]
  - Cough [Unknown]
  - Platelet count increased [Unknown]
  - Blood bilirubin increased [Unknown]
  - Hepatomegaly [Unknown]
  - Pyrexia [Unknown]
